FAERS Safety Report 4839893-2 (Version None)
Quarter: 2005Q4

REPORT INFORMATION
  Report Type: 
  Country: None (occurrence: None)
  Receive Date: 20051125
  Receipt Date: 20051114
  Transmission Date: 20060501
  Serious: Yes (Death)
  Sender: FDA-Public Use
  Company Number: 218949

PATIENT
  Age: 77 Year
  Sex: Male

DRUGS (19)
  1. RITUXAN [Suspect]
     Indication: NON-HODGKIN'S LYMPHOMA
     Dosage: 500 MG, INTRAVENOUS
     Route: 042
     Dates: start: 20040109, end: 20040220
  2. ADRIAMYCIN PFS [Suspect]
     Indication: NON-HODGKIN'S LYMPHOMA
     Dosage: 78 MG, INTRAVENOUS
     Route: 042
     Dates: start: 20040112, end: 20040223
  3. CYCLOPHOSPHAMIDE [Suspect]
     Indication: NON-HODGKIN'S LYMPHOMA
     Dosage: 880 MG, INTRAVENOUS
     Route: 042
     Dates: start: 20040112, end: 20040223
  4. ONCOVIN [Suspect]
     Indication: NON-HODGKIN'S LYMPHOMA
     Dosage: 2 MG, INTRAVENOUS
     Route: 042
     Dates: start: 20040112, end: 20040223
  5. PREDONINE [Suspect]
     Indication: NON-HODGKIN'S LYMPHOMA
     Dosage: 100 MG, ORAL
     Route: 048
     Dates: start: 20040112, end: 20040223
  6. MEROPENEM (MEROPENEM) [Concomitant]
  7. MINOCYCLINE HYDROCHLORIDE [Concomitant]
  8. BRUFEN (IBUPROFEN) [Concomitant]
  9. POLARAMINE [Concomitant]
  10. LASIX [Concomitant]
  11. ALFAROL (ALFACALCIDOL) [Concomitant]
  12. AMLODIPINE BESYLATE (AMLODIPINE BESYLATE) [Concomitant]
  13. ROXATIDINE ACETATE HCL [Concomitant]
  14. ADALAT [Concomitant]
  15. PENTAMIDINE (PENTAMIDINE) [Concomitant]
  16. MANNITOL [Concomitant]
  17. CIPROFLOXACIN HYDROCHLORIDE [Concomitant]
  18. CEFEPIME HYDROCHLORIDE (CEFEPIME HYDROCHLORIDE) [Concomitant]
  19. FILGRASTIM (FILGRASTIM) [Concomitant]

REACTIONS (14)
  - BLOOD ALBUMIN DECREASED [None]
  - BLOOD CALCIUM INCREASED [None]
  - BLOOD CREATININE INCREASED [None]
  - BLOOD LACTATE DEHYDROGENASE INCREASED [None]
  - BLOOD POTASSIUM DECREASED [None]
  - BLOOD UREA INCREASED [None]
  - CLOSTRIDIUM COLITIS [None]
  - DISSEMINATED INTRAVASCULAR COAGULATION [None]
  - HAEMOGLOBIN DECREASED [None]
  - NEUTROPHIL COUNT DECREASED [None]
  - NEUTROPHIL PERCENTAGE INCREASED [None]
  - PLEURAL EFFUSION [None]
  - PNEUMONIA [None]
  - RED BLOOD CELL COUNT DECREASED [None]
